FAERS Safety Report 10149706 (Version 1)
Quarter: 2014Q2

REPORT INFORMATION
  Report Type: Spontaneous
  Country: AU (occurrence: AU)
  Receive Date: 20140502
  Receipt Date: 20140502
  Transmission Date: 20141212
  Serious: Yes (Other)
  Sender: FDA-Public Use
  Company Number: AU-JNJFOC-20140419276

PATIENT
  Age: 43 Year
  Sex: Male

DRUGS (4)
  1. XARELTO [Suspect]
     Indication: PRODUCT USED FOR UNKNOWN INDICATION
     Route: 048
  2. LASIX [Concomitant]
     Route: 065
  3. SPIRONOLACTONE [Concomitant]
     Route: 065
  4. DIGOXIN [Concomitant]
     Route: 065

REACTIONS (1)
  - Hepatotoxicity [Recovering/Resolving]
